FAERS Safety Report 22035140 (Version 1)
Quarter: 2023Q1

REPORT INFORMATION
  Report Type: Spontaneous
  Country: None (occurrence: US)
  Receive Date: 20230224
  Receipt Date: 20230224
  Transmission Date: 20230417
  Serious: Yes (Death)
  Sender: FDA-Public Use
  Company Number: US-AnazaoHealth Corporation-2138388

PATIENT
  Age: 41 Year
  Sex: Male
  Weight: 95.455 kg

DRUGS (2)
  1. TESTOSTERONE [Suspect]
     Active Substance: TESTOSTERONE
     Indication: Hypogonadism male
     Route: 058
     Dates: start: 20230126
  2. 3,3^-DIINDOLYLMETHANE [Concomitant]
     Active Substance: 3,3^-DIINDOLYLMETHANE
     Dates: start: 20230126

REACTIONS (1)
  - Sudden cardiac death [Fatal]

NARRATIVE: CASE EVENT DATE: 20230208
